FAERS Safety Report 7526108-X (Version None)
Quarter: 2011Q2

REPORT INFORMATION
  Report Type: 
  Country: None (occurrence: None)
  Receive Date: 20110606
  Receipt Date: 20110601
  Transmission Date: 20111010
  Serious: Yes (Disabling)
  Sender: FDA-Public Use
  Company Number: US-MERCK-1105USA02890

PATIENT
  Age: 75 Year
  Sex: Male

DRUGS (4)
  1. ZOCOR [Suspect]
     Indication: HYPERCHOLESTEROLAEMIA
     Route: 048
     Dates: start: 19990601
  2. ZOCOR [Suspect]
     Route: 048
     Dates: start: 20000101
  3. ZOCOR [Suspect]
     Route: 048
     Dates: end: 20100401
  4. GEMFIBROZIL [Concomitant]
     Route: 065

REACTIONS (10)
  - MYOPATHY [None]
  - NEUROPATHY PERIPHERAL [None]
  - COUGH [None]
  - PULMONARY FIBROSIS [None]
  - DRY MOUTH [None]
  - BLOOD CREATININE INCREASED [None]
  - THROMBOSIS [None]
  - EAR PAIN [None]
  - EYE DISORDER [None]
  - SNEEZING [None]
